FAERS Safety Report 7583438-3 (Version None)
Quarter: 2011Q2

REPORT INFORMATION
  Report Type: 
  Country: None (occurrence: None)
  Receive Date: 20110623
  Receipt Date: 20110614
  Transmission Date: 20111010
  Serious: Yes (Other)
  Sender: FDA-Public Use
  Company Number: 1000020635

PATIENT
  Age: 56 Year
  Sex: Female
  Weight: 61.69 kg

DRUGS (6)
  1. BIOTIN [Concomitant]
  2. SAVELLA [Suspect]
     Indication: FIBROMYALGIA
     Dosage: 100 MG (50 MG, 2 IN 1 D),
  3. ESTRADIOL [Concomitant]
  4. NITROFURANTOIN [Concomitant]
  5. ANAPROX [Concomitant]
  6. FISH OIL [Concomitant]

REACTIONS (3)
  - CUTANEOUS LUPUS ERYTHEMATOSUS [None]
  - SKIN PLAQUE [None]
  - RASH [None]
